FAERS Safety Report 5960565-5 (Version None)
Quarter: 2008Q4

REPORT INFORMATION
  Report Type: 
  Country: None (occurrence: None)
  Receive Date: 20081120
  Receipt Date: 20080515
  Transmission Date: 20090506
  Serious: No
  Sender: FDA-Public Use
  Company Number: US-ABBOTT-08P-163-0433307-00

PATIENT
  Sex: Male
  Weight: 114 kg

DRUGS (20)
  1. BIAXIN [Suspect]
     Indication: HELICOBACTER INFECTION
     Route: 048
     Dates: start: 20071226, end: 20080103
  2. BIAXIN [Suspect]
     Indication: ABSCESS
  3. LANSOPRAZOLE [Suspect]
     Indication: HELICOBACTER INFECTION
     Route: 048
     Dates: start: 20071226, end: 20080103
  4. LANSOPRAZOLE [Suspect]
     Indication: ABSCESS
  5. AMOXICILLIN [Suspect]
     Indication: HELICOBACTER INFECTION
     Dosage: 2 TABLETS
     Route: 048
     Dates: start: 20071226, end: 20080103
  6. AMOXICILLIN [Suspect]
     Indication: ABSCESS
  7. PRAVASTATIN SODIUM [Concomitant]
     Indication: DRUG USE FOR UNKNOWN INDICATION
     Route: 048
  8. ALPRAZOLAM [Concomitant]
     Indication: ANXIETY
     Route: 048
  9. VALSARTAN [Concomitant]
     Indication: HYPERTENSION
     Route: 048
  10. HYDROCHLOROTHIAZIDE [Concomitant]
     Indication: HYPERTENSION
     Route: 048
  11. BUPROPION HCL [Concomitant]
     Indication: DEPRESSION
     Route: 048
  12. FLUOXETINE HYDROCHLORIDE [Concomitant]
     Indication: DEPRESSION
     Route: 048
  13. TOPIRAMATE [Concomitant]
     Indication: DRUG USE FOR UNKNOWN INDICATION
  14. ACETYLSALICYLIC ACID SRT [Concomitant]
     Indication: DRUG USE FOR UNKNOWN INDICATION
     Route: 048
  15. MULTI-VITAMIN [Concomitant]
     Indication: DRUG USE FOR UNKNOWN INDICATION
  16. GLUCOSAMINE [Concomitant]
     Indication: DRUG USE FOR UNKNOWN INDICATION
     Route: 048
  17. SERENOA REPENS [Concomitant]
     Indication: DRUG USE FOR UNKNOWN INDICATION
     Route: 048
  18. POLYCARBOPHIL CALCIUM [Concomitant]
     Indication: DRUG USE FOR UNKNOWN INDICATION
     Route: 048
  19. MAGNESIUM OXIDE [Concomitant]
     Indication: DRUG USE FOR UNKNOWN INDICATION
     Route: 048
  20. CYANOCOBALAMIN [Concomitant]
     Indication: DRUG USE FOR UNKNOWN INDICATION
     Route: 048

REACTIONS (6)
  - AGEUSIA [None]
  - GLOSSODYNIA [None]
  - LIP PAIN [None]
  - TONGUE DISORDER [None]
  - TONGUE DRY [None]
  - TONGUE HAEMORRHAGE [None]
